FAERS Safety Report 15651655 (Version 2)
Quarter: 2019Q2

REPORT INFORMATION
  Report Type: Spontaneous
  Country: US (occurrence: US)
  Receive Date: 20181123
  Receipt Date: 20190621
  Transmission Date: 20190711
  Serious: Yes (Death, Other)
  Sender: FDA-Public Use
  Company Number: US-ASTRAZENECA-2018SF52435

PATIENT
  Age: 51 Year
  Sex: Female
  Weight: 147.4 kg

DRUGS (26)
  1. NEXIUM [Suspect]
     Active Substance: ESOMEPRAZOLE MAGNESIUM
     Route: 048
     Dates: start: 200101, end: 201611
  2. DRISDOL [Concomitant]
     Active Substance: ERGOCALCIFEROL
  3. NEXIUM [Suspect]
     Active Substance: ESOMEPRAZOLE MAGNESIUM
     Dosage: 40 MG, UNKNOWN
     Route: 048
     Dates: start: 2001, end: 2016
  4. FUROSEMIDE. [Concomitant]
     Active Substance: FUROSEMIDE
  5. ECONAZOLE. [Concomitant]
     Active Substance: ECONAZOLE NITRATE
  6. LASIX [Concomitant]
     Active Substance: FUROSEMIDE
  7. HEPARIN [Concomitant]
     Active Substance: HEPARIN SODIUM
  8. BUSPIRONE [Concomitant]
     Active Substance: BUSPIRONE HYDROCHLORIDE
  9. CLONIDINE. [Concomitant]
     Active Substance: CLONIDINE
  10. WARFARIN [Concomitant]
     Active Substance: WARFARIN
  11. WARFARIN [Concomitant]
     Active Substance: WARFARIN
  12. SPIRONOLACTONE. [Concomitant]
     Active Substance: SPIRONOLACTONE
  13. ALPRAZOLAM. [Concomitant]
     Active Substance: ALPRAZOLAM
  14. TRAMADOL. [Concomitant]
     Active Substance: TRAMADOL
  15. AMLODIPINE [Concomitant]
     Active Substance: AMLODIPINE BESYLATE
  16. DOXYCLINE [Concomitant]
     Active Substance: DOXYCYCLINE
  17. ATENOLOL. [Concomitant]
     Active Substance: ATENOLOL
  18. ATENOLOL. [Concomitant]
     Active Substance: ATENOLOL
  19. LIDODERM [Concomitant]
     Active Substance: LIDOCAINE
  20. LYRICA [Concomitant]
     Active Substance: PREGABALIN
  21. LEVAQUIN [Concomitant]
     Active Substance: LEVOFLOXACIN
  22. BUSPAR [Concomitant]
     Active Substance: BUSPIRONE HYDROCHLORIDE
  23. LORAZEPAM. [Concomitant]
     Active Substance: LORAZEPAM
  24. PROMETHAZINE [Concomitant]
     Active Substance: PROMETHAZINE\PROMETHAZINE HYDROCHLORIDE
  25. PREDNISONE. [Concomitant]
     Active Substance: PREDNISONE
  26. FOLIC ACID. [Concomitant]
     Active Substance: FOLIC ACID

REACTIONS (3)
  - End stage renal disease [Recovered/Resolved]
  - Chronic kidney disease [Unknown]
  - Cardio-respiratory arrest [Fatal]

NARRATIVE: CASE EVENT DATE: 2011
